FAERS Safety Report 23503588 (Version 1)
Quarter: 2024Q1

REPORT INFORMATION
  Report Type: Spontaneous
  Country: US (occurrence: None)
  Receive Date: 20240208
  Receipt Date: 20240208
  Transmission Date: 20240409
  Serious: Yes (Other)
  Sender: FDA-Public Use
  Company Number: None

PATIENT
  Age: 71 Year
  Sex: Female

DRUGS (13)
  1. AMBRISENTAN [Suspect]
     Active Substance: AMBRISENTAN
     Indication: Pulmonary arterial hypertension
     Dosage: FREQUENCY : DAILY;?
     Route: 048
     Dates: start: 20210922
  2. FUROSEMIDE [Concomitant]
     Active Substance: FUROSEMIDE
  3. BISOPROLOL [Concomitant]
     Active Substance: BISOPROLOL\BISOPROLOL FUMARATE
  4. DUONEB [Concomitant]
     Active Substance: ALBUTEROL SULFATE\IPRATROPIUM BROMIDE
  5. PERCOCET [Concomitant]
     Active Substance: ACETAMINOPHEN\OXYCODONE HYDROCHLORIDE
  6. NARCAN [Concomitant]
     Active Substance: NALOXONE HYDROCHLORIDE
  7. FAMOTIDINE [Concomitant]
     Active Substance: FAMOTIDINE
  8. ALBUTEROL SULFATE [Concomitant]
     Active Substance: ALBUTEROL SULFATE
  9. LOSARTAN [Concomitant]
     Active Substance: LOSARTAN
  10. FLONASE [Concomitant]
     Active Substance: FLUTICASONE PROPIONATE
  11. POTASSIUM [Concomitant]
     Active Substance: POTASSIUM
  12. SPIRIVA RESPIMAT [Concomitant]
     Active Substance: TIOTROPIUM BROMIDE
  13. WIXELA INHUB [Concomitant]
     Active Substance: FLUTICASONE PROPIONATE\SALMETEROL XINAFOATE

REACTIONS (7)
  - Dyspnoea [None]
  - Nausea [None]
  - Vomiting [None]
  - Abdominal pain [None]
  - Gastritis [None]
  - Viral infection [None]
  - Food poisoning [None]

NARRATIVE: CASE EVENT DATE: 20231229
